FAERS Safety Report 8772048 (Version 1)
Quarter: 2012Q4

REPORT INFORMATION
  Report Type: 
  Country: US (occurrence: US)
  Receive Date: 20120906
  Receipt Date: 20120906
  Transmission Date: 20130627
  Serious: No
  Sender: FDA-Public Use
  Company Number: US-009507513-1207USA008506

PATIENT

DRUGS (2)
  1. DULERA [Suspect]
     Dosage: 2 patients were on 100/5 milligram
  2. DULERA [Suspect]
     Dosage: 1 patient on 200/5 milligram

REACTIONS (1)
  - Dysphonia [Recovered/Resolved]
